FAERS Safety Report 11655679 (Version 2)
Quarter: 2015Q4

REPORT INFORMATION
  Report Type: Spontaneous
  Country: US (occurrence: US)
  Receive Date: 20151023
  Receipt Date: 20151023
  Transmission Date: 20160304
  Serious: No
  Sender: FDA-Public Use
  Company Number: US-ASTELLAS-2015US036230

PATIENT
  Age: 57 Year
  Sex: Male

DRUGS (38)
  1. MYCAMINE [Suspect]
     Active Substance: MICAFUNGIN SODIUM
     Indication: HYPERNATRAEMIA
  2. MYCAMINE [Suspect]
     Active Substance: MICAFUNGIN SODIUM
     Indication: ABSCESS LIMB
  3. MYCAMINE [Suspect]
     Active Substance: MICAFUNGIN SODIUM
     Indication: INTERVERTEBRAL DISC DEGENERATION
  4. MYCAMINE [Suspect]
     Active Substance: MICAFUNGIN SODIUM
     Indication: ACIDOSIS
  5. MYCAMINE [Suspect]
     Active Substance: MICAFUNGIN SODIUM
     Indication: ANAEMIA
  6. MYCAMINE [Suspect]
     Active Substance: MICAFUNGIN SODIUM
     Indication: LIVER DISORDER
  7. MYCAMINE [Suspect]
     Active Substance: MICAFUNGIN SODIUM
     Indication: ACUTE RESPIRATORY FAILURE
  8. MYCAMINE [Suspect]
     Active Substance: MICAFUNGIN SODIUM
     Indication: LIVER DISORDER
  9. MYCAMINE [Suspect]
     Active Substance: MICAFUNGIN SODIUM
     Indication: GENITAL TRACT INFLAMMATION
  10. MYCAMINE [Suspect]
     Active Substance: MICAFUNGIN SODIUM
     Indication: DECUBITUS ULCER
  11. MYCAMINE [Suspect]
     Active Substance: MICAFUNGIN SODIUM
     Indication: ESSENTIAL HYPERTENSION
  12. MYCAMINE [Suspect]
     Active Substance: MICAFUNGIN SODIUM
     Indication: ACUTE RESPIRATORY FAILURE
  13. MYCAMINE [Suspect]
     Active Substance: MICAFUNGIN SODIUM
     Indication: HYPOGLYCAEMIA
  14. MYCAMINE [Suspect]
     Active Substance: MICAFUNGIN SODIUM
     Indication: ACUTE KIDNEY INJURY
  15. MYCAMINE [Suspect]
     Active Substance: MICAFUNGIN SODIUM
     Indication: CELLULITIS
  16. MYCAMINE [Suspect]
     Active Substance: MICAFUNGIN SODIUM
     Indication: HYPOGLYCAEMIA
  17. MYCAMINE [Suspect]
     Active Substance: MICAFUNGIN SODIUM
     Indication: HYPERNATRAEMIA
  18. MYCAMINE [Suspect]
     Active Substance: MICAFUNGIN SODIUM
     Indication: ARTERIOSCLEROSIS CORONARY ARTERY
  19. MYCAMINE [Suspect]
     Active Substance: MICAFUNGIN SODIUM
     Indication: THERMAL BURN
  20. MYCAMINE [Suspect]
     Active Substance: MICAFUNGIN SODIUM
     Indication: BLOOD OSMOLARITY INCREASED
  21. MYCAMINE [Suspect]
     Active Substance: MICAFUNGIN SODIUM
     Indication: BURNS THIRD DEGREE
  22. MYCAMINE [Suspect]
     Active Substance: MICAFUNGIN SODIUM
     Indication: THERMAL BURN
  23. MYCAMINE [Suspect]
     Active Substance: MICAFUNGIN SODIUM
     Indication: GENITAL TRACT INFLAMMATION
  24. MYCAMINE [Suspect]
     Active Substance: MICAFUNGIN SODIUM
     Indication: CELLULITIS
  25. MYCAMINE [Suspect]
     Active Substance: MICAFUNGIN SODIUM
     Indication: ABSCESS LIMB
  26. MYCAMINE [Suspect]
     Active Substance: MICAFUNGIN SODIUM
     Indication: MYIASIS
     Dosage: UNK UNK, UNKNOWN FREQ.
     Route: 042
     Dates: start: 20150808, end: 20150809
  27. MYCAMINE [Suspect]
     Active Substance: MICAFUNGIN SODIUM
     Indication: ACIDOSIS
  28. MYCAMINE [Suspect]
     Active Substance: MICAFUNGIN SODIUM
     Indication: MYIASIS
     Dosage: UNK UNK, UNKNOWN FREQ.
     Route: 042
     Dates: start: 20150808, end: 20150809
  29. MYCAMINE [Suspect]
     Active Substance: MICAFUNGIN SODIUM
     Indication: EMPHYSEMA
  30. MYCAMINE [Suspect]
     Active Substance: MICAFUNGIN SODIUM
     Indication: ACUTE KIDNEY INJURY
  31. MYCAMINE [Suspect]
     Active Substance: MICAFUNGIN SODIUM
     Indication: ANAEMIA
  32. MYCAMINE [Suspect]
     Active Substance: MICAFUNGIN SODIUM
     Indication: ESSENTIAL HYPERTENSION
  33. MYCAMINE [Suspect]
     Active Substance: MICAFUNGIN SODIUM
     Indication: BLOOD OSMOLARITY INCREASED
  34. MYCAMINE [Suspect]
     Active Substance: MICAFUNGIN SODIUM
     Indication: EMPHYSEMA
  35. MYCAMINE [Suspect]
     Active Substance: MICAFUNGIN SODIUM
     Indication: DECUBITUS ULCER
  36. MYCAMINE [Suspect]
     Active Substance: MICAFUNGIN SODIUM
     Indication: BURNS THIRD DEGREE
  37. MYCAMINE [Suspect]
     Active Substance: MICAFUNGIN SODIUM
     Indication: ARTERIOSCLEROSIS CORONARY ARTERY
  38. MYCAMINE [Suspect]
     Active Substance: MICAFUNGIN SODIUM
     Indication: INTERVERTEBRAL DISC DEGENERATION

REACTIONS (1)
  - Off label use [Unknown]

NARRATIVE: CASE EVENT DATE: 20150808
